FAERS Safety Report 6043901-3 (Version None)
Quarter: 2009Q1

REPORT INFORMATION
  Report Type: 
  Country: None (occurrence: None)
  Receive Date: 20090120
  Receipt Date: 20090114
  Transmission Date: 20090719
  Serious: Yes (Hospitalization)
  Sender: FDA-Public Use
  Company Number: US-BIOGENIDEC-2008BI027323

PATIENT
  Sex: Female

DRUGS (2)
  1. AVONEX [Suspect]
     Indication: MULTIPLE SCLEROSIS
     Route: 030
     Dates: start: 19990721, end: 20051216
  2. AVONEX [Suspect]
     Route: 030

REACTIONS (2)
  - BENIGN NEOPLASM OF THYROID GLAND [None]
  - MYOCARDIAL INFARCTION [None]
